FAERS Safety Report 6432646-3 (Version None)
Quarter: 2009Q4

REPORT INFORMATION
  Report Type: 
  Country: None (occurrence: None)
  Receive Date: 20091109
  Receipt Date: 20091102
  Transmission Date: 20100525
  Serious: Yes (Death, Hospitalization, Other)
  Sender: FDA-Public Use
  Company Number: ES-ELI_LILLY_AND_COMPANY-ES200911000414

PATIENT
  Age: 94 Year
  Sex: Male

DRUGS (6)
  1. HUMULIN N [Suspect]
     Indication: TYPE 2 DIABETES MELLITUS
     Dosage: 22 IU, 2/D
     Route: 058
     Dates: start: 20090605, end: 20090619
  2. OMEPRAZOLE [Concomitant]
     Dosage: 20 MG, DAILY (1/D)
     Route: 048
  3. ADIRO [Concomitant]
     Indication: ISCHAEMIC CARDIOMYOPATHY
     Dosage: 100 MG, DAILY (1/D)
     Route: 048
     Dates: start: 19790101
  4. NITRODERM [Concomitant]
     Indication: ISCHAEMIC CARDIOMYOPATHY
     Dosage: 10 MG, DAILY (1/D)
     Route: 062
  5. ZYLORIC [Concomitant]
     Dosage: 100 MG, DAILY (1/D)
     Route: 048
  6. ZAMENE [Concomitant]
     Indication: BRONCHOPNEUMONIA
     Dosage: UNK, UNKNOWN
     Route: 048
     Dates: start: 20090605, end: 20090619

REACTIONS (9)
  - ACIDOSIS [None]
  - ASPIRATION BRONCHIAL [None]
  - CHOKING [None]
  - DEATH [None]
  - DYSPNOEA [None]
  - HYPOGLYCAEMIA [None]
  - PAIN [None]
  - PNEUMONIA [None]
  - RESPIRATORY FAILURE [None]
